FAERS Safety Report 5448395-4 (Version None)
Quarter: 2007Q3

REPORT INFORMATION
  Report Type: 
  Country: None (occurrence: None)
  Receive Date: 20070906
  Receipt Date: 20070822
  Transmission Date: 20080115
  Serious: No
  Sender: FDA-Public Use
  Company Number: TPA2007A01789

PATIENT
  Age: 64 Year
  Sex: Female
  Weight: 95.2554 kg

DRUGS (7)
  1. ACTOS [Suspect]
     Indication: TYPE 2 DIABETES MELLITUS
     Dosage: PER ORAL
     Route: 048
     Dates: start: 20060101, end: 20070101
  2. ACTOPLUS MET [Suspect]
     Indication: TYPE 2 DIABETES MELLITUS
     Dosage: 15 MG/500 MG 2 IN 1 D, PER ORAL
     Route: 048
     Dates: start: 20070101
  3. HUMALOG 75/25 INSULIN PEN(INSULIN LISPRO) (INJECTION) [Concomitant]
  4. LIPITOR [Concomitant]
  5. PROCARDIA XL [Concomitant]
  6. INDERAL LA [Concomitant]
  7. LASIX [Concomitant]

REACTIONS (4)
  - HUNGER [None]
  - HYPOGLYCAEMIA [None]
  - OEDEMA PERIPHERAL [None]
  - WEIGHT INCREASED [None]
